FAERS Safety Report 8225542-2 (Version None)
Quarter: 2012Q1

REPORT INFORMATION
  Report Type: 
  Country: None (occurrence: None)
  Receive Date: 20120321
  Receipt Date: 20120308
  Transmission Date: 20120608
  Serious: Yes (Other)
  Sender: FDA-Public Use
  Company Number: PHHY2012NL020754

PATIENT

DRUGS (4)
  1. BASILIXIMAB [Suspect]
     Indication: LUNG TRANSPLANT
  2. TACROLIMUS [Suspect]
     Indication: LUNG TRANSPLANT
  3. MYCOPHENOLATE MOFETIL [Suspect]
     Indication: LUNG TRANSPLANT
  4. PREDNISOLONE [Suspect]
     Indication: LUNG TRANSPLANT

REACTIONS (5)
  - PULMONARY FUNCTION TEST DECREASED [None]
  - LUNG ADENOCARCINOMA [None]
  - LYMPHADENOPATHY [None]
  - METASTASES TO LYMPH NODES [None]
  - RHINOVIRUS INFECTION [None]
